FAERS Safety Report 5804064-X (Version None)
Quarter: 2008Q3

REPORT INFORMATION
  Report Type: 
  Country: None (occurrence: None)
  Receive Date: 20080707
  Receipt Date: 20080707
  Transmission Date: 20090109
  Serious: Yes (Hospitalization, Disabling)
  Sender: FDA-Public Use
  Company Number: None

PATIENT
  Age: 59 Year
  Sex: Female

DRUGS (12)
  1. ZOMETA [Suspect]
     Indication: BREAST CANCER
     Dosage: 4 MG MONTHLY I.V.
     Route: 042
  2. FOSAMAX [Suspect]
     Indication: OSTEOPOROSIS
     Dosage: 70 MG WEEKLY ORAL
     Route: 048
  3. SIMVASTATIN [Concomitant]
  4. SYNTHROID [Concomitant]
  5. ANOMASIN [Concomitant]
  6. POTASSIUM CHLORIDE [Concomitant]
  7. LASIX [Concomitant]
  8. MAGACE [Concomitant]
  9. LACTULOSE [Concomitant]
  10. LIPITOR [Concomitant]
  11. FENTANYL CITRATE [Concomitant]
  12. OXYCODONE HCL [Concomitant]

REACTIONS (1)
  - BONE DISORDER [None]
